FAERS Safety Report 9536175 (Version 1)
Quarter: 2013Q3

REPORT INFORMATION
  Report Type: Spontaneous
  Country: US (occurrence: None)
  Receive Date: 20130917
  Receipt Date: 20130917
  Transmission Date: 20140515
  Serious: Yes (Other)
  Sender: FDA-Public Use
  Company Number: None

PATIENT
  Age: 85 Year
  Sex: Male
  Weight: 63.5 kg

DRUGS (5)
  1. DEGARELIX [Suspect]
     Indication: PROSTATE CANCER
     Dosage: EVERY TWENTY EIGHT DAYS INJECTION IN STOMACH
     Dates: start: 201106
  2. DIOVAN [Concomitant]
  3. VYTORIN [Concomitant]
  4. CIMIDIDINE [Concomitant]
  5. ASPIRIN [Concomitant]

REACTIONS (2)
  - Chills [None]
  - Pyrexia [None]
